FAERS Safety Report 7587003-3 (Version None)
Quarter: 2011Q3

REPORT INFORMATION
  Report Type: 
  Country: None (occurrence: None)
  Receive Date: 20110701
  Receipt Date: 20110622
  Transmission Date: 20111222
  Serious: Yes (Hospitalization, Other)
  Sender: FDA-Public Use
  Company Number: PHFR2011GB03797

PATIENT
  Sex: Male

DRUGS (1)
  1. CLOZAPINE [Suspect]
     Indication: SCHIZOPHRENIA
     Dosage: 400 MG, QD
     Route: 048
     Dates: start: 20001026, end: 20110627

REACTIONS (4)
  - LUNG NEOPLASM MALIGNANT [None]
  - EAR DISORDER [None]
  - AXILLARY MASS [None]
  - SQUAMOUS CELL CARCINOMA [None]
